FAERS Safety Report 4999121-4 (Version None)
Quarter: 2006Q1

REPORT INFORMATION
  Report Type: 
  Country: None (occurrence: None)
  Receive Date: 20060315
  Receipt Date: 20051119
  Transmission Date: 20060701
  Serious: Yes (Other)
  Sender: FDA-Public Use
  Company Number: 419901

PATIENT
  Sex: Female

DRUGS (6)
  1. BONIVA [Suspect]
     Indication: DRUG USE FOR UNKNOWN INDICATION
     Dosage: 150 MG 1 PER MONTH ORAL
     Route: 048
     Dates: start: 20050804, end: 20051104
  2. FML-S LIQUIFILM (FLUOROMETHOLONE/SULFACETAMIDE) [Concomitant]
  3. PULMICORT [Concomitant]
  4. PROTONIX [Concomitant]
  5. OTHER DRUGS (NOT SPECIFIED) (GENERIC UNKNOWN) [Concomitant]
  6. COUMADIN [Concomitant]

REACTIONS (1)
  - VULVOVAGINAL MYCOTIC INFECTION [None]
